FAERS Safety Report 18595394 (Version 3)
Quarter: 2023Q4

REPORT INFORMATION
  Report Type: Spontaneous
  Country: US (occurrence: US)
  Receive Date: 20201209
  Receipt Date: 20231006
  Transmission Date: 20240109
  Serious: Yes (Hospitalization, Other)
  Sender: FDA-Public Use
  Company Number: US-ALXN-A202017799

PATIENT
  Age: 3 Year
  Sex: Female

DRUGS (1)
  1. KANUMA [Suspect]
     Active Substance: SEBELIPASE ALFA
     Indication: Lysosomal acid lipase deficiency
     Dosage: 40 MG, QW 5MG/KG
     Route: 065
     Dates: start: 201707

REACTIONS (4)
  - Hepatic cirrhosis [Unknown]
  - Left ventricular dysfunction [Unknown]
  - Pleural effusion [Unknown]
  - Diarrhoea [Unknown]
